FAERS Safety Report 17042604 (Version 1)
Quarter: 2019Q4

REPORT INFORMATION
  Report Type: Spontaneous
  Country: US (occurrence: US)
  Receive Date: 20191017
  Receipt Date: 20191017
  Transmission Date: 20200122
  Serious: Yes (Disabling, Other)
  Sender: FDA-Public Use
  Company Number: None

PATIENT
  Age: 38 Year
  Sex: Female
  Weight: 76.2 kg

DRUGS (5)
  1. CLARITHROMYCIN. [Suspect]
     Active Substance: CLARITHROMYCIN
     Indication: PHARYNGITIS STREPTOCOCCAL
     Dosage: ?          QUANTITY:1 PILL  2X^S DAY;?
     Route: 048
     Dates: start: 20190101, end: 20190101
  2. VIT D [Concomitant]
     Active Substance: VITAMIN D NOS
  3. MULTI VITAMIN [Concomitant]
     Active Substance: VITAMINS
  4. VITAMIN C [Concomitant]
     Active Substance: ASCORBIC ACID
  5. ESSENTIAL OILS WHEN SICK [Concomitant]

REACTIONS (4)
  - Insomnia [None]
  - Vertigo [None]
  - Photopsia [None]
  - Hallucination, visual [None]

NARRATIVE: CASE EVENT DATE: 20190101
